FAERS Safety Report 9769088 (Version 3)
Quarter: 2014Q2

REPORT INFORMATION
  Report Type: Spontaneous
  Country: US (occurrence: None)
  Receive Date: 20131216
  Receipt Date: 20140612
  Transmission Date: 20141212
  Serious: Yes (Other)
  Sender: FDA-Public Use
  Company Number: 2013P1021830

PATIENT
  Age: 32 Year
  Sex: Female

DRUGS (2)
  1. MYORISAN [Suspect]
     Dates: start: 20130801, end: 20131201
  2. BIRTH CONTROL PILLS [Suspect]

REACTIONS (6)
  - Pregnancy [None]
  - Treatment noncompliance [None]
  - Drug dose omission [None]
  - Unintended pregnancy [None]
  - Pregnancy with contraceptive device [None]
  - Abortion induced [None]
